FAERS Safety Report 14173213 (Version 1)
Quarter: 2017Q4

REPORT INFORMATION
  Report Type: Spontaneous
  Country: US (occurrence: None)
  Receive Date: 20171109
  Receipt Date: 20171109
  Transmission Date: 20180321
  Serious: Yes (Disabling)
  Sender: FDA-Public Use
  Company Number: None

PATIENT
  Age: 68 Year
  Sex: Female
  Weight: 81.19 kg

DRUGS (4)
  1. LISINOPRIL. [Concomitant]
     Active Substance: LISINOPRIL
  2. LETROZOLE 2.5MG TABLETS [Suspect]
     Active Substance: LETROZOLE
     Indication: POSTOPERATIVE CARE
     Route: 048
     Dates: start: 20170809, end: 20170925
  3. LETROZOLE 2.5MG TABLETS [Suspect]
     Active Substance: LETROZOLE
     Indication: BREAST CANCER
     Route: 048
     Dates: start: 20170809, end: 20170925
  4. MULT. VITAMIN [Concomitant]

REACTIONS (2)
  - Gait inability [None]
  - Bone pain [None]

NARRATIVE: CASE EVENT DATE: 20170925
